FAERS Safety Report 12906928 (Version 1)
Quarter: 2016Q4

REPORT INFORMATION
  Report Type: Spontaneous
  Country: IE (occurrence: IE)
  Receive Date: 20161103
  Receipt Date: 20161103
  Transmission Date: 20170207
  Serious: Yes (Other)
  Sender: FDA-Public Use
  Company Number: IE-JNJFOC-20161025472

PATIENT

DRUGS (1)
  1. INFLIXIMAB, RECOMBINANT [Suspect]
     Active Substance: INFLIXIMAB
     Indication: ARTHRITIS
     Route: 042

REACTIONS (5)
  - Infusion related reaction [Unknown]
  - Off label use [Unknown]
  - Adverse event [Unknown]
  - Arthritis [Unknown]
  - Product use issue [Unknown]
